FAERS Safety Report 9470810 (Version 1)
Quarter: 2013Q3

REPORT INFORMATION
  Report Type: Spontaneous
  Country: US (occurrence: None)
  Receive Date: 20130820
  Receipt Date: 20130820
  Transmission Date: 20140515
  Serious: Yes (Hospitalization)
  Sender: FDA-Public Use
  Company Number: None

PATIENT
  Age: 73 Year
  Sex: Male
  Weight: 101.61 kg

DRUGS (7)
  1. ROCEPHIN [Suspect]
     Indication: BRONCHITIS
     Dates: start: 20130805
  2. WARAFIN [Concomitant]
  3. LOSARTAN [Concomitant]
  4. FENOFIBRATE [Concomitant]
  5. ATORVASTATIN [Concomitant]
  6. NEXIUM [Concomitant]
  7. VITAMIN D [Concomitant]

REACTIONS (4)
  - Loss of consciousness [None]
  - Eye movement disorder [None]
  - Dyspnoea [None]
  - Fall [None]
